FAERS Safety Report 6884478-X (Version None)
Quarter: 2010Q3

REPORT INFORMATION
  Report Type: 
  Country: None (occurrence: None)
  Receive Date: 20100729
  Receipt Date: 20100727
  Transmission Date: 20110219
  Serious: Yes (Other)
  Sender: FDA-Public Use
  Company Number: US-ABBOTT-10P-163-0659650-00

PATIENT
  Age: 57 Year
  Sex: Female
  Weight: 90.8 kg

DRUGS (10)
  1. NIASPAN [Suspect]
     Indication: BLOOD CHOLESTEROL INCREASED
     Route: 048
     Dates: start: 20070101
  2. LIPITOR [Suspect]
     Indication: BLOOD CHOLESTEROL INCREASED
     Route: 048
     Dates: start: 20050101, end: 20060101
  3. LIPITOR [Suspect]
     Indication: CEREBROVASCULAR ACCIDENT
  4. LOVASTATIN [Suspect]
     Indication: BLOOD CHOLESTEROL INCREASED
     Route: 048
     Dates: start: 20060801, end: 20070101
  5. RED YEAST RICE [Suspect]
     Indication: BLOOD CHOLESTEROL INCREASED
     Dates: start: 20100101, end: 20100201
  6. VERAPAMIL [Concomitant]
     Indication: HYPERTENSION
  7. ACETYLSALICYLIC ACID SRT [Concomitant]
     Indication: HYPERTENSION
  8. NORVASC [Concomitant]
     Indication: HYPERTENSION
  9. ACETAMINOPHEN [Concomitant]
     Indication: PRODUCT USED FOR UNKNOWN INDICATION
  10. PROPOXYPHENE HCL [Concomitant]
     Indication: PRODUCT USED FOR UNKNOWN INDICATION

REACTIONS (6)
  - CATARACT [None]
  - EXOSTOSIS [None]
  - ILL-DEFINED DISORDER [None]
  - MYALGIA [None]
  - VISUAL ACUITY REDUCED [None]
  - WEIGHT BEARING DIFFICULTY [None]
